FAERS Safety Report 4850852-6 (Version None)
Quarter: 2005Q4

REPORT INFORMATION
  Report Type: 
  Country: None (occurrence: None)
  Receive Date: 20051208
  Receipt Date: 20051124
  Transmission Date: 20060501
  Serious: Yes (Hospitalization, Other)
  Sender: FDA-Public Use
  Company Number: 2005145565

PATIENT
  Age: 81 Year
  Sex: Female
  Weight: 40 kg

DRUGS (9)
  1. LIPITOR [Suspect]
     Indication: HYPERLIPIDAEMIA
     Dosage: 10 MG (10 MG, QD) ORAL
     Route: 048
     Dates: start: 20041024, end: 20050912
  2. DOXAZOSIN MESYLATE [Concomitant]
  3. BLOPRESS (CANDESARTAN CILEXETIL) [Concomitant]
  4. CONIEL (BENIDIPINE HYDROCHLORIDE) [Concomitant]
  5. FAMOTIDINE [Concomitant]
  6. TAKA-DIASTASE (DIASTASE, TAKA) [Concomitant]
  7. DAI-KENCHU-TO (DAI-KENCHU-TO) [Concomitant]
  8. ASPARA K (ASPARTATE POTASSIUM) [Concomitant]
  9. ALOSENN (ACHILLEA, RUBIA ROOT TINCTURE, SENNA FRUIT, SENNA LEAF, TARAX [Concomitant]

REACTIONS (4)
  - BLOOD PRESSURE SYSTOLIC INCREASED [None]
  - HYPOKALAEMIA [None]
  - RHABDOMYOLYSIS [None]
  - THIRST [None]
